FAERS Safety Report 5480853-9 (Version None)
Quarter: 2007Q3

REPORT INFORMATION
  Report Type: 
  Country: None (occurrence: None)
  Receive Date: 20070917
  Receipt Date: 20070712
  Transmission Date: 20080115
  Serious: Yes (Other)
  Sender: FDA-Public Use
  Company Number: BDI-009833

PATIENT
  Age: 54 Year
  Sex: Male
  Weight: 64 kg

DRUGS (2)
  1. MULTIHANCE [Suspect]
     Indication: BACK PAIN
     Dosage: 14 ML ONCE IV
     Route: 042
     Dates: start: 20070709, end: 20070709
  2. MULTIHANCE [Suspect]
     Indication: NUCLEAR MAGNETIC RESONANCE IMAGING
     Dosage: 14 ML ONCE IV
     Route: 042
     Dates: start: 20070709, end: 20070709

REACTIONS (1)
  - HYPERSENSITIVITY [None]
